FAERS Safety Report 18711367 (Version 1)
Quarter: 2021Q1

REPORT INFORMATION
  Report Type: Spontaneous
  Country: IL (occurrence: IL)
  Receive Date: 20210107
  Receipt Date: 20210107
  Transmission Date: 20210419
  Serious: Yes (Other)
  Sender: FDA-Public Use
  Company Number: IL-AMGEN-ISRSP2020212838

PATIENT
  Age: 72 Year
  Sex: Female

DRUGS (1)
  1. PROLIA [Suspect]
     Active Substance: DENOSUMAB
     Indication: PRODUCT USED FOR UNKNOWN INDICATION
     Dosage: UNK
     Route: 065
     Dates: start: 2014

REACTIONS (7)
  - Hyperthyroidism [Unknown]
  - Lower limb fracture [Unknown]
  - Urine calcium increased [Unknown]
  - Compression fracture [Unknown]
  - Adenoma benign [Unknown]
  - Fall [Unknown]
  - Blood calcium increased [Unknown]

NARRATIVE: CASE EVENT DATE: 2020
